FAERS Safety Report 12606036 (Version 1)
Quarter: 2016Q3

REPORT INFORMATION
  Report Type: Spontaneous
  Country: US (occurrence: None)
  Receive Date: 20160728
  Receipt Date: 20160728
  Transmission Date: 20161109
  Serious: No
  Sender: FDA-Public Use
  Company Number: None

PATIENT
  Sex: Female

DRUGS (1)
  1. HUMALOG [Suspect]
     Active Substance: INSULIN LISPRO

REACTIONS (8)
  - Drug dose omission [None]
  - Malaise [None]
  - Glycosylated haemoglobin increased [None]
  - Complication associated with device [None]
  - Unresponsive to stimuli [None]
  - Blood glucose decreased [None]
  - Coma [None]
  - Apparent death [None]
